FAERS Safety Report 24622675 (Version 1)
Quarter: 2024Q4

REPORT INFORMATION
  Report Type: Spontaneous
  Country: US (occurrence: US)
  Receive Date: 20241115
  Receipt Date: 20241115
  Transmission Date: 20250115
  Serious: No
  Sender: STALLERGENES
  Company Number: US-STALCOR-2024-AER-01995

PATIENT
  Age: 4 Year
  Weight: 21.32 kg

DRUGS (3)
  1. PALFORZIA [Suspect]
     Active Substance: PEANUT
     Indication: Food allergy
     Dosage: LEVEL ONE UP-DOSE IN OFFICE WITH EITHER YOGURT OR APPLESAUCE, WITH NO ISSUES
     Route: 048
     Dates: start: 20240828, end: 20240828
  2. PALFORZIA [Suspect]
     Active Substance: PEANUT
     Dosage: INITIAL DOSE ESCALATION (IDE 0.5-6 MG) AT OFFICE, WITH EITHER YOGURT OR APPLESAUCE, WITH NO ISSUES
     Route: 048
     Dates: start: 20240827, end: 20240827
  3. PALFORZIA [Suspect]
     Active Substance: PEANUT
     Dosage: REACTIVE DOSE AT HOME, UNSPECIFIED DOSAGE
     Route: 048
     Dates: start: 20240829, end: 20240902

REACTIONS (3)
  - Throat irritation [Unknown]
  - Rhinorrhoea [Unknown]
  - Sneezing [Unknown]

NARRATIVE: CASE EVENT DATE: 20240901
